FAERS Safety Report 11254720 (Version 1)
Quarter: 2015Q3

REPORT INFORMATION
  Report Type: Spontaneous
  Country: US (occurrence: US)
  Receive Date: 20150709
  Receipt Date: 20150709
  Transmission Date: 20151125
  Serious: Yes (Hospitalization)
  Sender: FDA-Public Use
  Company Number: US-PFIZER INC-2015212051

PATIENT
  Age: 70 Year
  Sex: Male

DRUGS (1)
  1. ROBITUSSIN COUGH AND CHEST CONGESTION DM MAX [Suspect]
     Active Substance: DEXTROMETHORPHAN HYDROBROMIDE\GUAIFENESIN
     Indication: COUGH
     Dosage: 10 ML, 2X/DAY

REACTIONS (1)
  - Drug ineffective [Recovered/Resolved]
